FAERS Safety Report 10920928 (Version 1)
Quarter: 2015Q1

REPORT INFORMATION
  Report Type: Report from Study
  Country: US (occurrence: US)
  Receive Date: 20150317
  Receipt Date: 20150317
  Transmission Date: 20150721
  Serious: Yes (Hospitalization, Other)
  Sender: FDA-Public Use
  Company Number: US-ASTRAZENECA-2015SE22718

PATIENT
  Age: 904 Month
  Sex: Male
  Weight: 83.9 kg

DRUGS (2)
  1. PLAVIX [Concomitant]
     Active Substance: CLOPIDOGREL BISULFATE
  2. BRILINTA [Suspect]
     Active Substance: TICAGRELOR
     Indication: STENT PLACEMENT
     Route: 048

REACTIONS (4)
  - Confusional state [Recovering/Resolving]
  - Meningitis viral [Recovered/Resolved]
  - Abasia [Recovering/Resolving]
  - Mass [Unknown]

NARRATIVE: CASE EVENT DATE: 201502
